FAERS Safety Report 18032175 (Version 1)
Quarter: 2020Q3

REPORT INFORMATION
  Report Type: Spontaneous
  Country: US (occurrence: US)
  Receive Date: 20200716
  Receipt Date: 20200716
  Transmission Date: 20201103
  Serious: Yes (Other)
  Sender: FDA-Public Use
  Company Number: US-GILEAD-2020-0483517

PATIENT

DRUGS (1)
  1. ATRIPLA [Suspect]
     Active Substance: EFAVIRENZ\EMTRICITABINE\TENOFOVIR DISOPROXIL FUMARATE
     Indication: PRODUCT USED FOR UNKNOWN INDICATION
     Dosage: UNK
     Route: 048
     Dates: start: 2005, end: 2013

REACTIONS (7)
  - Fracture [Unknown]
  - Tooth loss [Unknown]
  - Bone density decreased [Unknown]
  - Hip fracture [Unknown]
  - Osteonecrosis [Unknown]
  - Hip arthroplasty [Unknown]
  - Bone loss [Unknown]
